FAERS Safety Report 17462931 (Version 1)
Quarter: 2020Q1

REPORT INFORMATION
  Report Type: Spontaneous
  Country: US (occurrence: US)
  Receive Date: 20191109
  Receipt Date: 20191109
  Transmission Date: 20200409
  Serious: Yes (Life-Threatening, Disabling)
  Sender: FDA-Public Use
  Company Number: None

PATIENT
  Age: 44 Year
  Sex: Female

DRUGS (7)
  1. PROVIGIL [Concomitant]
     Active Substance: MODAFINIL
  2. NAPROXEN. [Concomitant]
     Active Substance: NAPROXEN
  3. XYREM [Concomitant]
     Active Substance: SODIUM OXYBATE
  4. BACLOFEN. [Concomitant]
     Active Substance: BACLOFEN
  5. THC CARTRIDGE [Suspect]
     Active Substance: .DELTA.8-TETRAHYDROCANNABINOL\DEVICE\HERBALS
  6. DANK VAPES THC CARTRIDGES [Suspect]
     Active Substance: .DELTA.8-TETRAHYDROCANNABINOL\DEVICE\HERBALS
  7. CEREAL CARTS IN CEREAL FLAVORS [THC] [Suspect]
     Active Substance: .DELTA.8-TETRAHYDROCANNABINOL\DEVICE\HERBALS

REACTIONS (13)
  - Oropharyngeal pain [None]
  - Recalled product administered [None]
  - Tongue discomfort [None]
  - Cough [None]
  - Dyspnoea [None]
  - Malaise [None]
  - Glossodynia [None]
  - Speech disorder [None]
  - Hypoaesthesia oral [None]
  - Dysphonia [None]
  - Oral discomfort [None]
  - Paraesthesia [None]
  - Hypoaesthesia [None]
